FAERS Safety Report 24907619 (Version 1)
Quarter: 2025Q1

REPORT INFORMATION
  Report Type: Spontaneous
  Country: GB (occurrence: GB)
  Receive Date: 20250131
  Receipt Date: 20250131
  Transmission Date: 20250409
  Serious: Yes (Other)
  Sender: Haleon PLC
  Company Number: GB-KENVUE-20241206071

PATIENT

DRUGS (2)
  1. NICORETTE WHITE ICE MINT [Suspect]
     Active Substance: NICOTINE
     Indication: Electronic cigarette user
     Route: 048
  2. NICORETTE WHITE ICE MINT [Suspect]
     Active Substance: NICOTINE
     Indication: Smoking cessation therapy

REACTIONS (3)
  - Drug dependence [Unknown]
  - Product use in unapproved indication [Unknown]
  - Product packaging issue [Unknown]
